FAERS Safety Report 6292300-8 (Version None)
Quarter: 2009Q3

REPORT INFORMATION
  Report Type: 
  Country: None (occurrence: None)
  Receive Date: 20090731
  Receipt Date: 20090720
  Transmission Date: 20100115
  Serious: Yes (Hospitalization, Other)
  Sender: FDA-Public Use
  Company Number: BR-ROCHE-646222

PATIENT
  Sex: Female
  Weight: 59 kg

DRUGS (5)
  1. RIVOTRIL [Suspect]
     Indication: DEPRESSION
     Route: 048
     Dates: start: 20050101, end: 20050101
  2. RIVOTRIL [Suspect]
     Route: 048
     Dates: start: 20090715
  3. RIVOTRIL [Suspect]
     Dosage: DOSE LOWERED
     Route: 048
     Dates: end: 20090727
  4. DULCOLAX [Concomitant]
     Indication: LAXATIVE SUPPORTIVE CARE
     Dosage: START DATE: MANY YEARS AGO, FREQUENCY: 4 TO 5 TABLETS AT NIGHT
  5. GARDENAL [Concomitant]

REACTIONS (7)
  - BULIMIA NERVOSA [None]
  - COMPULSIONS [None]
  - INTENTIONAL OVERDOSE [None]
  - IRRITABILITY [None]
  - MEDICATION ERROR [None]
  - NERVOUSNESS [None]
  - SUICIDAL IDEATION [None]
